FAERS Safety Report 5909824-2 (Version None)
Quarter: 2008Q4

REPORT INFORMATION
  Report Type: 
  Country: None (occurrence: None)
  Receive Date: 20081002
  Receipt Date: 20080902
  Transmission Date: 20090506
  Serious: Yes (Other)
  Sender: FDA-Public Use
  Company Number: 1000001138

PATIENT
  Age: 82 Year
  Sex: Male

DRUGS (11)
  1. ESCTTALOPRAM (ESCITALOPRAM OXALATE) (TABLETS) [Suspect]
     Dosage: ORAL
     Route: 048
     Dates: end: 20080523
  2. LIPANTHYL [Suspect]
     Indication: ATRIAL FIBRILLATION
     Dosage: ORAL
     Route: 048
     Dates: end: 20080523
  3. ACENOCOUMAROL [Suspect]
     Indication: ATRIAL FIBRILLATION
     Dosage: 4 MG (4 MG, 1 IN 1 D), ORAL
     Route: 048
     Dates: start: 20080201, end: 20080523
  4. CLOPIDOGREL [Concomitant]
  5. METFORMIN [Concomitant]
  6. OMEPRAZOLE [Concomitant]
  7. FUROSEMIDE [Concomitant]
  8. CHONDROITIN SULFATE SODIUM [Concomitant]
  9. TAMSULOSIN HCL [Concomitant]
  10. ULTRACET [Concomitant]
  11. PERINDOPRIL [Concomitant]

REACTIONS (6)
  - BLOOD PRESSURE SYSTOLIC DECREASED [None]
  - DEMENTIA [None]
  - HAEMATEMESIS [None]
  - HAEMOGLOBIN DECREASED [None]
  - HAEMOPTYSIS [None]
  - INTERNATIONAL NORMALISED RATIO INCREASED [None]
